FAERS Safety Report 8923896 (Version 1)
Quarter: 2012Q4

REPORT INFORMATION
  Report Type: Spontaneous
  Country: US (occurrence: None)
  Receive Date: 20121121
  Receipt Date: 20121121
  Transmission Date: 20130627
  Serious: Yes (Life-Threatening)
  Sender: FDA-Public Use
  Company Number: None

PATIENT
  Sex: Female

DRUGS (1)
  1. UKNOWN 10 MG [Suspect]
     Indication: BIPOLAR DISORDER
     Route: 048
     Dates: end: 201208

REACTIONS (1)
  - Hypersensitivity [None]
